FAERS Safety Report 17659388 (Version 2)
Quarter: 2020Q2

REPORT INFORMATION
  Report Type: Spontaneous
  Country: US (occurrence: US)
  Receive Date: 20200413
  Receipt Date: 20200506
  Transmission Date: 20200713
  Serious: Yes (Other)
  Sender: FDA-Public Use
  Company Number: US-CIPLA LTD.-2020US02511

PATIENT

DRUGS (6)
  1. GABAPENTIN. [Concomitant]
     Active Substance: GABAPENTIN
     Indication: TACHYPHRENIA
  2. PRAVASTATIN. [Concomitant]
     Active Substance: PRAVASTATIN
     Indication: BLOOD CHOLESTEROL INCREASED
     Dosage: 40 MILLIGRAM, DAILY
     Route: 065
     Dates: start: 2010
  3. SERTRALINE [Suspect]
     Active Substance: SERTRALINE HYDROCHLORIDE
     Indication: DEPRESSION
     Dosage: 150 MILLIGRAM, DAILY (100 MG, TAKES 1 AND A HALF TABLETS)
     Route: 048
     Dates: start: 2003, end: 202002
  4. SERTRALINE [Suspect]
     Active Substance: SERTRALINE HYDROCHLORIDE
     Indication: GENERALISED ANXIETY DISORDER
  5. GABAPENTIN. [Concomitant]
     Active Substance: GABAPENTIN
     Indication: SLEEP DISORDER
     Dosage: 900 MG (100 MG IN THE MORNING AND 800 MG AT NIGHT ), BID
     Route: 065
     Dates: start: 2003
  6. SERTRALINE [Suspect]
     Active Substance: SERTRALINE HYDROCHLORIDE
     Indication: OBSESSIVE-COMPULSIVE DISORDER

REACTIONS (1)
  - Drug ineffective [Recovered/Resolved]

NARRATIVE: CASE EVENT DATE: 201912
